FAERS Safety Report 6654021-9 (Version None)
Quarter: 2010Q1

REPORT INFORMATION
  Report Type: 
  Country: None (occurrence: None)
  Receive Date: 20100324
  Receipt Date: 20100322
  Transmission Date: 20100710
  Serious: Yes (Hospitalization, Other)
  Sender: FDA-Public Use
  Company Number: 8037339

PATIENT
  Sex: Female
  Weight: 76.5 kg

DRUGS (7)
  1. CERTOLIZUMAB PEGOL (CDP870) [Suspect]
     Indication: RHEUMATOID ARTHRITIS
     Dosage: SEE IMAGE
     Route: 058
     Dates: start: 20051220, end: 20060606
  2. CERTOLIZUMAB PEGOL (CDP870) [Suspect]
     Indication: RHEUMATOID ARTHRITIS
     Dosage: SEE IMAGE
     Route: 058
     Dates: start: 20060606, end: 20071105
  3. CERTOLIZUMAB PEGOL (CDP870) [Suspect]
     Indication: RHEUMATOID ARTHRITIS
     Dosage: SEE IMAGE
     Route: 058
     Dates: start: 20071120, end: 20080811
  4. CERTOLIZUMAB PEGOL (CDP870) [Suspect]
     Indication: RHEUMATOID ARTHRITIS
     Dosage: SEE IMAGE
     Route: 058
     Dates: start: 20080910
  5. METHOTREXATE [Concomitant]
  6. FOLIC ACID [Concomitant]
  7. DICLOFENAC SODIUM [Concomitant]

REACTIONS (9)
  - ADENOMYOSIS [None]
  - BLOOD AMYLASE DECREASED [None]
  - BLOOD BILIRUBIN INCREASED [None]
  - BLOOD CREATINE INCREASED [None]
  - OVARIAN DISORDER [None]
  - PROTEIN TOTAL INCREASED [None]
  - PYELOCYSTITIS [None]
  - UTERINE DISORDER [None]
  - WHITE BLOOD CELL COUNT INCREASED [None]
